FAERS Safety Report 14690295 (Version 1)
Quarter: 2018Q1

REPORT INFORMATION
  Report Type: Spontaneous
  Country: JO (occurrence: JO)
  Receive Date: 20180328
  Receipt Date: 20180328
  Transmission Date: 20180509
  Serious: Yes (Death, Hospitalization, Other)
  Sender: FDA-Public Use
  Company Number: JO-FRESENIUS KABI-FK201803789

PATIENT
  Age: 2 Year
  Sex: Male

DRUGS (5)
  1. VINCRISTINE (MANUFACTURER UNKNOWN) [Suspect]
     Active Substance: VINCRISTINE
     Indication: CHEMOTHERAPY
     Route: 065
  2. MERCAPTOPURINE. [Suspect]
     Active Substance: MERCAPTOPURINE
     Indication: CHEMOTHERAPY
     Route: 065
  3. L-ASPARAGINASE [Suspect]
     Active Substance: ASPARAGINASE
     Indication: CHEMOTHERAPY
     Route: 065
  4. DOXORUBICIN (MANUFACTURER UNKNOWN) [Suspect]
     Active Substance: DOXORUBICIN
     Indication: CHEMOTHERAPY
     Route: 065
  5. DEXAMETHASONE INJECTION (MANUFACTURER UNKNOWN) [Suspect]
     Active Substance: DEXAMETHASONE
     Indication: CHEMOTHERAPY
     Route: 065

REACTIONS (5)
  - Multiple organ dysfunction syndrome [Fatal]
  - Herpes simplex hepatitis [Fatal]
  - Hepatic necrosis [Fatal]
  - Febrile neutropenia [Not Recovered/Not Resolved]
  - Mucosal inflammation [Not Recovered/Not Resolved]
